FAERS Safety Report 5777128-7 (Version None)
Quarter: 2008Q2

REPORT INFORMATION
  Report Type: 
  Country: None (occurrence: None)
  Receive Date: 20080618
  Receipt Date: 20080610
  Transmission Date: 20081010
  Serious: Yes (Other)
  Sender: FDA-Public Use
  Company Number: FI-ASTRAZENECA-2008AC01510

PATIENT
  Age: 48 Year
  Sex: Male
  Weight: 100 kg

DRUGS (4)
  1. ROPIVACAINE [Suspect]
     Indication: TINNITUS
     Route: 042
  2. NASAL STEROID [Concomitant]
  3. OMEPRATSOL [Concomitant]
  4. IMIDAZOPYRIDINE [Concomitant]

REACTIONS (2)
  - GRAND MAL CONVULSION [None]
  - LOSS OF CONSCIOUSNESS [None]
